FAERS Safety Report 11779016 (Version 1)
Quarter: 2015Q4

REPORT INFORMATION
  Report Type: Other
  Country: US (occurrence: US)
  Receive Date: 20151125
  Receipt Date: 20151125
  Transmission Date: 20160304
  Serious: Yes (Other)
  Sender: FDA-Public Use
  Company Number: US-SHIRE-US-002110

PATIENT

DRUGS (3)
  1. GATTEX [Suspect]
     Active Substance: TEDUGLUTIDE\WATER
     Indication: SHORT-BOWEL SYNDROME
     Dosage: DF
     Route: 058
     Dates: start: 20150423
  2. ZOFRAN [Concomitant]
     Active Substance: ONDANSETRON HYDROCHLORIDE
     Indication: PRODUCT USED FOR UNKNOWN INDICATION
     Dosage: DF
  3. PARENTERAL [Concomitant]
     Indication: NUTRITIONAL SUPPLEMENTATION
     Dosage: UNK

REACTIONS (11)
  - Weight decreased [Unknown]
  - Dehydration [Unknown]
  - Faecal vomiting [Not Recovered/Not Resolved]
  - Feeding disorder [Unknown]
  - Ear pain [Unknown]
  - Oropharyngeal pain [Unknown]
  - Asthenia [Not Recovered/Not Resolved]
  - Malabsorption [Unknown]
  - Nausea [Unknown]
  - Vomiting [Unknown]
  - Pain [Unknown]

NARRATIVE: CASE EVENT DATE: 2015
